FAERS Safety Report 5738641-1 (Version None)
Quarter: 2008Q2

REPORT INFORMATION
  Report Type: 
  Country: None (occurrence: None)
  Receive Date: 20080515
  Receipt Date: 20080508
  Transmission Date: 20081010
  Serious: Yes (Hospitalization, Other)
  Sender: FDA-Public Use
  Company Number: PHHY2008BR03966

PATIENT
  Age: 74 Year
  Sex: Female
  Weight: 51 kg

DRUGS (3)
  1. FORASEQ [Suspect]
     Indication: ASTHMA
     Dosage: 2 CAPS MORNING AND NIGHT
     Dates: start: 20050101
  2. ALENDRONATE SODIUM [Concomitant]
     Indication: OSTEOPOROSIS
     Dosage: UNK, QD
     Route: 048
     Dates: start: 20050101
  3. CALCIUM [Concomitant]
     Indication: OSTEOPOROSIS
     Dosage: 500 MG, QD
     Route: 048
     Dates: start: 20060101

REACTIONS (10)
  - BRONCHITIS [None]
  - COUGH [None]
  - DEVICE MALFUNCTION [None]
  - DYSPNOEA [None]
  - FATIGUE [None]
  - INCREASED BRONCHIAL SECRETION [None]
  - LABYRINTHITIS [None]
  - MALAISE [None]
  - NASOPHARYNGITIS [None]
  - VOMITING [None]
